FAERS Safety Report 7513542-7 (Version None)
Quarter: 2011Q2

REPORT INFORMATION
  Report Type: 
  Country: None (occurrence: None)
  Receive Date: 20110531
  Receipt Date: 20110519
  Transmission Date: 20111010
  Serious: Yes (Hospitalization, Other)
  Sender: FDA-Public Use
  Company Number: US-BAYER-200930036NA

PATIENT
  Age: 33 Year
  Sex: Female
  Weight: 83 kg

DRUGS (11)
  1. YAZ [Suspect]
     Route: 048
     Dates: start: 20080430, end: 20090108
  2. HYDROCODONE BITARTRATE [Concomitant]
  3. YAZ [Suspect]
     Indication: CONTRACEPTION
     Route: 048
     Dates: start: 20070614, end: 20080124
  4. NASONEX [Concomitant]
  5. EFFEXOR XR [Concomitant]
     Indication: DEPRESSION
  6. CELEBREX [Concomitant]
     Route: 048
  7. EFFEXOR XR [Concomitant]
     Indication: STRESS
     Dosage: 100 MG (DAILY DOSE), ,
     Dates: start: 20070101
  8. LORTAB [Concomitant]
     Dosage: 1-2 TABLETS
     Route: 048
  9. AVELOX [Concomitant]
  10. SKELAXIN [Concomitant]
     Dosage: DAILY DOSE 800 MG
     Route: 048
  11. EFFEXOR [Concomitant]
     Dosage: DAILY DOSE 150 MG
     Route: 048

REACTIONS (5)
  - HYPOAESTHESIA [None]
  - PAIN IN EXTREMITY [None]
  - DEEP VEIN THROMBOSIS [None]
  - INJURY [None]
  - OEDEMA PERIPHERAL [None]
